FAERS Safety Report 7652823-3 (Version None)
Quarter: 2011Q3

REPORT INFORMATION
  Report Type: 
  Country: None (occurrence: None)
  Receive Date: 20110803
  Receipt Date: 20110725
  Transmission Date: 20111222
  Serious: Yes (Hospitalization)
  Sender: FDA-Public Use
  Company Number: US-AMGEN-USASP2011038451

PATIENT
  Age: 55 Year
  Sex: Female
  Weight: 53.515 kg

DRUGS (3)
  1. PROCRIT [Suspect]
     Indication: RENAL FAILURE
     Dosage: UNK
     Route: 058
     Dates: start: 20080101
  2. PREDNISONE [Concomitant]
     Dosage: UNK
  3. IMURAN [Concomitant]
     Dosage: UNK

REACTIONS (3)
  - DIVERTICULITIS [None]
  - DRUG DOSE OMISSION [None]
  - FISTULA [None]
